FAERS Safety Report 22356479 (Version 1)
Quarter: 2023Q2

REPORT INFORMATION
  Report Type: Spontaneous
  Country: US (occurrence: None)
  Receive Date: 20230523
  Receipt Date: 20230523
  Transmission Date: 20230721
  Serious: Yes (Other)
  Sender: FDA-Public Use
  Company Number: None

PATIENT
  Age: 67 Year
  Sex: Female
  Weight: 75.2 kg

DRUGS (1)
  1. GADAVIST [Suspect]
     Active Substance: GADOBUTROL
     Indication: Gallbladder neoplasm
     Route: 042
     Dates: start: 20230518, end: 20230518

REACTIONS (3)
  - Confusional state [None]
  - Disorientation [None]
  - Memory impairment [None]

NARRATIVE: CASE EVENT DATE: 20230518
